FAERS Safety Report 9214053 (Version 1)
Quarter: 2013Q2

REPORT INFORMATION
  Report Type: Spontaneous
  Country: US (occurrence: None)
  Receive Date: 20130404
  Receipt Date: 20130404
  Transmission Date: 20140414
  Serious: Yes (Hospitalization, Other)
  Sender: FDA-Public Use
  Company Number: None

PATIENT
  Age: 88 Year
  Sex: Male

DRUGS (1)
  1. SUTENT 50MG [Suspect]
     Indication: ILL-DEFINED DISORDER
     Dosage: DAILY X4W, OFF 2W
     Route: 048
     Dates: start: 20130115, end: 20130215

REACTIONS (5)
  - Fatigue [None]
  - Thinking abnormal [None]
  - Gait disturbance [None]
  - Hyperglycaemia [None]
  - Hypertension [None]
